FAERS Safety Report 8102381-4 (Version None)
Quarter: 2012Q1

REPORT INFORMATION
  Report Type: 
  Country: None (occurrence: None)
  Receive Date: 20120201
  Receipt Date: 20120130
  Transmission Date: 20120608
  Serious: No
  Sender: FDA-Public Use
  Company Number: US-PFIZER INC-2012025206

PATIENT
  Sex: Female
  Weight: 86 kg

DRUGS (12)
  1. CHANTIX [Suspect]
     Indication: SMOKING CESSATION THERAPY
     Dosage: 0.5 MG, 1X/DAY
     Route: 048
     Dates: start: 20111101, end: 20111101
  2. CHANTIX [Suspect]
     Dosage: 0.5 MG, 2X/DAY
     Route: 048
     Dates: start: 20111101, end: 20111101
  3. LASIX [Concomitant]
     Indication: BLOOD PRESSURE ABNORMAL
     Dosage: UNK
  4. CHANTIX [Suspect]
     Dosage: 1 MG, 2X/DAY
     Route: 048
     Dates: start: 20111101
  5. LORTAB [Concomitant]
  6. SPIRIVA [Concomitant]
     Indication: CHRONIC OBSTRUCTIVE PULMONARY DISEASE
     Dosage: UNK
  7. SOMA [Concomitant]
     Indication: MULTIPLE SCLEROSIS
     Dosage: UNK
  8. HYDROCHLOROTHIAZIDE [Concomitant]
     Indication: BLOOD PRESSURE ABNORMAL
     Dosage: UNK
  9. LORTAB [Concomitant]
     Indication: SCIATICA
     Dosage: UNK
  10. XANAX [Concomitant]
     Indication: ANXIETY
     Dosage: UNK
  11. NEURONTIN [Concomitant]
     Indication: FIBROMYALGIA
     Dosage: UNK
  12. SOMA [Concomitant]
     Indication: BACK PAIN

REACTIONS (2)
  - ABNORMAL DREAMS [None]
  - CONSTIPATION [None]
